FAERS Safety Report 26217110 (Version 1)
Quarter: 2025Q4

REPORT INFORMATION
  Report Type: Report from Study
  Country: ZA (occurrence: ZA)
  Receive Date: 20251231
  Receipt Date: 20251231
  Transmission Date: 20260117
  Serious: Yes (Other)
  Sender: ROCHE
  Company Number: ZA-ROCHE-10000262288

PATIENT
  Age: 70 Year
  Sex: Male

DRUGS (2)
  1. VABYSMO [Suspect]
     Active Substance: FARICIMAB-SVOA
     Indication: Macular degeneration
     Dates: start: 20240612
  2. EYLEA [Concomitant]
     Active Substance: AFLIBERCEPT
     Indication: Macular degeneration
     Dates: start: 20230816, end: 20251022

REACTIONS (4)
  - Optical coherence tomography abnormal [Unknown]
  - Visual acuity reduced [Unknown]
  - Retinal thickening [Unknown]
  - Off label use [Unknown]
